FAERS Safety Report 13049601 (Version 3)
Quarter: 2017Q1

REPORT INFORMATION
  Report Type: Spontaneous
  Country: BR (occurrence: BR)
  Receive Date: 20161221
  Receipt Date: 20170130
  Transmission Date: 20170428
  Serious: Yes (Other)
  Sender: FDA-Public Use
  Company Number: BR-SA-2016SA231509

PATIENT
  Age: 62 Year
  Sex: Male
  Weight: 68 kg

DRUGS (11)
  1. ELOXATIN [Suspect]
     Active Substance: OXALIPLATIN
     Indication: ADENOCARCINOMA OF COLON
     Dosage: 109MG EV IN Y
     Route: 042
     Dates: start: 20160906, end: 20160906
  2. ELOXATIN [Suspect]
     Active Substance: OXALIPLATIN
     Indication: ADENOCARCINOMA OF COLON
     Route: 042
     Dates: start: 20161205, end: 20161205
  3. ALLOPURINOL. [Concomitant]
     Active Substance: ALLOPURINOL
     Route: 048
     Dates: start: 20160719
  4. FAULDFLUOR [Concomitant]
     Active Substance: FLUOROURACIL
     Route: 042
     Dates: start: 20160906
  5. FLUOROURACIL. [Concomitant]
     Active Substance: FLUOROURACIL
     Route: 040
  6. FRONTAL [Concomitant]
     Active Substance: ALPRAZOLAM
     Route: 048
     Dates: start: 20160906
  7. FAULDLEUCO [Concomitant]
     Active Substance: LEUCOVORIN CALCIUM
     Route: 042
     Dates: start: 20160906
  8. FOLINIC ACID [Concomitant]
     Active Substance: LEUCOVORIN
     Dosage: FOLINIC ACID 668MG IN 90 MINUTES
     Route: 065
  9. COLCHICINE. [Concomitant]
     Active Substance: COLCHICINE
     Route: 048
     Dates: start: 20160906
  10. DOMPERIDONE [Concomitant]
     Active Substance: DOMPERIDONE
     Route: 048
     Dates: start: 20160906
  11. FLUOROURACIL. [Concomitant]
     Active Substance: FLUOROURACIL
     Route: 065

REACTIONS (4)
  - Respiratory distress [Recovered/Resolved]
  - Thrombocytopenia [Recovered/Resolved]
  - Pruritus [Recovered/Resolved]
  - Flushing [Recovered/Resolved]

NARRATIVE: CASE EVENT DATE: 20161205
